FAERS Safety Report 6389191-3 (Version None)
Quarter: 2009Q4

REPORT INFORMATION
  Report Type: 
  Country: None (occurrence: None)
  Receive Date: 20091006
  Receipt Date: 20090924
  Transmission Date: 20100525
  Serious: Yes (Life-Threatening, Hospitalization)
  Sender: FDA-Public Use
  Company Number: DE-BAYER-200929258GPV

PATIENT
  Age: 68 Year
  Sex: Male
  Weight: 69 kg

DRUGS (4)
  1. LEVITRA [Suspect]
     Indication: ERECTILE DYSFUNCTION
     Dosage: UNIT DOSE: 20 MG
     Route: 048
     Dates: start: 20090725, end: 20090725
  2. ATORVASTATIN CALCIUM [Concomitant]
  3. PLAVIX [Concomitant]
  4. CONCOR [Concomitant]

REACTIONS (6)
  - ANAPHYLACTIC SHOCK [None]
  - ARRHYTHMIA [None]
  - CHILLS [None]
  - OCULAR HYPERAEMIA [None]
  - TACHYCARDIA [None]
  - URTICARIA [None]
